FAERS Safety Report 6187536-0 (Version None)
Quarter: 2009Q2

REPORT INFORMATION
  Report Type: 
  Country: None (occurrence: None)
  Receive Date: 20090512
  Receipt Date: 20090508
  Transmission Date: 20091009
  Serious: Yes (Hospitalization, Other)
  Sender: FDA-Public Use
  Company Number: US-ASTRAZENECA-2009UW00599

PATIENT
  Age: 29 Year
  Sex: Female
  Weight: 105.2 kg

DRUGS (8)
  1. SEROQUEL [Suspect]
     Indication: MIGRAINE
     Route: 048
     Dates: start: 20020101, end: 20060901
  2. SEROQUEL [Suspect]
     Indication: DEPRESSION
     Route: 048
     Dates: start: 20020101, end: 20060901
  3. XENICAL [Concomitant]
     Dates: start: 20000101
  4. ZYPREXA [Concomitant]
  5. FLUOXETINE [Concomitant]
     Dates: start: 20040413, end: 20060630
  6. TRAZODONE HCL [Concomitant]
     Dates: start: 20070530, end: 20071001
  7. WELLBUTRIN [Concomitant]
     Dates: start: 20040413
  8. EFFEXOR [Concomitant]
     Dates: start: 20050101, end: 20050501

REACTIONS (18)
  - ABDOMINAL HERNIA REPAIR [None]
  - ABDOMINAL PAIN [None]
  - ARTHRALGIA [None]
  - BACK PAIN [None]
  - BLOOD CHOLESTEROL INCREASED [None]
  - BLOOD TRIGLYCERIDES INCREASED [None]
  - CHEST PAIN [None]
  - COLITIS ULCERATIVE [None]
  - DEBRIDEMENT [None]
  - DEEP VEIN THROMBOSIS [None]
  - GALLBLADDER DISORDER [None]
  - IRRITABLE BOWEL SYNDROME [None]
  - MASS [None]
  - OBESITY [None]
  - PAIN [None]
  - PANCREATITIS [None]
  - SINUS DISORDER [None]
  - TYPE 2 DIABETES MELLITUS [None]
